FAERS Safety Report 10522605 (Version 1)
Quarter: 2014Q4

REPORT INFORMATION
  Report Type: Spontaneous
  Country: AR (occurrence: None)
  Receive Date: 20141014
  Receipt Date: 20141014
  Transmission Date: 20150528
  Serious: Yes (Hospitalization)
  Sender: FDA-Public Use
  Company Number: 2014HINLIT0924

PATIENT
  Age: 84 Year
  Sex: Female

DRUGS (1)
  1. LITHIUM [Suspect]
     Active Substance: LITHIUM CARBONATE
     Indication: BIPOLAR DISORDER

REACTIONS (7)
  - Aphasia [None]
  - Hypernatraemia [None]
  - Speech disorder [None]
  - Hyperkalaemia [None]
  - Hyperchloraemia [None]
  - Nephrogenic diabetes insipidus [None]
  - Cerebrovascular accident [None]
